FAERS Safety Report 9981266 (Version 3)
Quarter: 2014Q3

REPORT INFORMATION
  Report Type: Spontaneous
  Country: US (occurrence: None)
  Receive Date: 20140305
  Receipt Date: 20140812
  Transmission Date: 20150326
  Serious: Yes (Hospitalization, Other)
  Sender: FDA-Public Use
  Company Number: VAL_03008_2014

PATIENT
  Age: 35 Year
  Sex: Male

DRUGS (3)
  1. METOPROLOL 25 MG [Suspect]
     Active Substance: METOPROLOL
     Indication: PRODUCT USED FOR UNKNOWN INDICATION
     Dosage: (47 DF 1X, NOT THE PRESCRIBED AMOUNT ORAL)
     Route: 048
  2. AMLODIPINE [Suspect]
     Active Substance: AMLODIPINE BESYLATE
     Indication: PRODUCT USED FOR UNKNOWN INDICATION
     Dosage: (30 DF 1X, NOT THE PRESCRIBED AMOUNT ORAL)
     Route: 048
  3. VERAPAMIL [Suspect]
     Active Substance: VERAPAMIL HYDROCHLORIDE
     Indication: PRODUCT USED FOR UNKNOWN INDICATION
     Dosage: (57 DF 1X, NOT THE PRESCRIBED AMOUNT ORAL)
     Route: 048

REACTIONS (14)
  - Toxicity to various agents [None]
  - Hypotension [None]
  - Pulseless electrical activity [None]
  - Unresponsive to stimuli [None]
  - Sinus bradycardia [None]
  - Renal failure acute [None]
  - Cardiogenic shock [None]
  - Intentional overdose [None]
  - Haemodialysis [None]
  - Hypoglycaemia [None]
  - Suicide attempt [None]
  - Overdose [None]
  - Cardiac arrest [None]
  - Lactic acidosis [None]
